FAERS Safety Report 11046956 (Version 1)
Quarter: 2015Q2

REPORT INFORMATION
  Report Type: Spontaneous
  Country: BR (occurrence: BR)
  Receive Date: 20150420
  Receipt Date: 20150420
  Transmission Date: 20150821
  Serious: Yes (Other)
  Sender: FDA-Public Use
  Company Number: BR-HORIZON-VIM-0044-2015

PATIENT
  Age: 54 Year
  Sex: Male
  Weight: 68 kg

DRUGS (2)
  1. VIMOVO [Suspect]
     Active Substance: ESOMEPRAZOLE MAGNESIUM\NAPROXEN
     Indication: ARTHRALGIA
     Route: 048
     Dates: start: 201503, end: 201503
  2. NIFEDIPINE. [Concomitant]
     Active Substance: NIFEDIPINE
     Indication: BLOOD PRESSURE ABNORMAL
     Route: 048
     Dates: start: 201412

REACTIONS (3)
  - Abdominal pain [Recovered/Resolved]
  - Eructation [Recovered/Resolved]
  - Off label use [Recovered/Resolved]

NARRATIVE: CASE EVENT DATE: 201503
